FAERS Safety Report 4421449-7 (Version None)
Quarter: 2004Q3

REPORT INFORMATION
  Report Type: 
  Country: None (occurrence: None)
  Receive Date: 20040709
  Receipt Date: 20040326
  Transmission Date: 20050211
  Serious: Yes (Hospitalization)
  Sender: FDA-Public Use
  Company Number: 2004S1000080

PATIENT
  Sex: Female

DRUGS (1)
  1. CUBICIN [Suspect]
     Dosage: IV
     Route: 042
     Dates: start: 20040301, end: 20040301

REACTIONS (1)
  - JAUNDICE [None]
